FAERS Safety Report 10056601 (Version 2)
Quarter: 2014Q2

REPORT INFORMATION
  Report Type: Report from Study
  Country: US (occurrence: US)
  Receive Date: 20140403
  Receipt Date: 20140414
  Transmission Date: 20141212
  Serious: Yes (Hospitalization)
  Sender: FDA-Public Use
  Company Number: US-ACTELION-A-NJ2014-96592

PATIENT
  Age: 31 Year
  Sex: Female

DRUGS (4)
  1. TRACLEER [Suspect]
     Indication: PULMONARY ARTERIAL HYPERTENSION
     Dosage: UNK
     Route: 048
  2. FLOLAN [Concomitant]
  3. ADCIRCA [Concomitant]
  4. COUMADIN [Concomitant]

REACTIONS (3)
  - Intestinal haemorrhage [Unknown]
  - Haematochezia [Unknown]
  - Vomiting [Recovered/Resolved]
